FAERS Safety Report 8535907-7 (Version None)
Quarter: 2012Q3

REPORT INFORMATION
  Report Type: 
  Country: None (occurrence: None)
  Receive Date: 20120725
  Receipt Date: 20120719
  Transmission Date: 20120928
  Serious: Yes (Other)
  Sender: FDA-Public Use
  Company Number: PHHY2012MX062898

PATIENT
  Sex: Female

DRUGS (3)
  1. DOLO-NEUROBION FORTE [Concomitant]
     Indication: PAIN
     Dosage: 1 EVERY 3 DAY
  2. ZOLEDRONOC ACID [Suspect]
     Indication: OSTEOPOROSIS
     Dosage: 5 MG, YERARLY
     Route: 042
     Dates: start: 20080101
  3. CALCITRIOL [Concomitant]
     Indication: OSTEOPOROSIS
     Dosage: 2 PER DAY

REACTIONS (2)
  - SPINAL COLUMN INJURY [None]
  - FALL [None]
